FAERS Safety Report 13748963 (Version 1)
Quarter: 2017Q3

REPORT INFORMATION
  Report Type: Spontaneous
  Country: US (occurrence: US)
  Receive Date: 20170712
  Receipt Date: 20170712
  Transmission Date: 20171127
  Serious: Yes (Life-Threatening)
  Sender: FDA-Public Use
  Company Number: None

PATIENT
  Age: 53 Year
  Sex: Male
  Weight: 72.9 kg

DRUGS (1)
  1. CEFTRIAXONE. [Suspect]
     Active Substance: CEFTRIAXONE
     Indication: PREOPERATIVE CARE
     Dosage: ?          OTHER FREQUENCY:ONCE;?
     Route: 041
     Dates: start: 20170706, end: 20170706

REACTIONS (7)
  - Unresponsive to stimuli [None]
  - Screaming [None]
  - Nausea [None]
  - Retching [None]
  - Emotional distress [None]
  - Infusion related reaction [None]
  - Cardiac arrest [None]

NARRATIVE: CASE EVENT DATE: 20170706
